FAERS Safety Report 18342142 (Version 1)
Quarter: 2020Q4

REPORT INFORMATION
  Report Type: Spontaneous
  Country: FR (occurrence: FR)
  Receive Date: 20201005
  Receipt Date: 20201005
  Transmission Date: 20210113
  Serious: Yes (Hospitalization, Other)
  Sender: FDA-Public Use
  Company Number: FR-BRISTOL-MYERS SQUIBB COMPANY-BMS-2020-079507

PATIENT
  Age: 66 Year
  Sex: Female

DRUGS (2)
  1. AZACTAM [Suspect]
     Active Substance: AZTREONAM
     Indication: SKIN TEST
     Dosage: 1 DOSAGE FORM
     Route: 061
     Dates: start: 202006
  2. MEROPENEM ANHYDROUS [Suspect]
     Active Substance: MEROPENEM ANHYDROUS
     Indication: SKIN TEST
     Dosage: 1 DOSAGE FORM
     Route: 061
     Dates: start: 202006

REACTIONS (1)
  - Drug reaction with eosinophilia and systemic symptoms [Recovered/Resolved]

NARRATIVE: CASE EVENT DATE: 202007
